FAERS Safety Report 9641487 (Version 1)
Quarter: 2013Q4

REPORT INFORMATION
  Report Type: Spontaneous
  Country: US (occurrence: US)
  Receive Date: 20131023
  Receipt Date: 20131023
  Transmission Date: 20140711
  Serious: No
  Sender: FDA-Public Use
  Company Number: US-ABBVIE-13P-163-1129836-00

PATIENT
  Age: 43 Year
  Sex: Female
  Weight: 60.38 kg

DRUGS (3)
  1. LUPRON DEPOT [Suspect]
     Indication: MENORRHAGIA
     Dates: start: 20130703
  2. LUPRON DEPOT [Suspect]
     Indication: UTERINE LEIOMYOMA
  3. IRON SUPPLEMENT [Concomitant]
     Indication: ANAEMIA

REACTIONS (3)
  - Off label use [Unknown]
  - Oedema peripheral [Recovering/Resolving]
  - Weight increased [Recovering/Resolving]
